FAERS Safety Report 5572116-8 (Version None)
Quarter: 2007Q4

REPORT INFORMATION
  Report Type: 
  Country: None (occurrence: None)
  Receive Date: 20071221
  Receipt Date: 20071211
  Transmission Date: 20080405
  Serious: Yes (Other)
  Sender: FDA-Public Use
  Company Number: US-PFIZER INC-2007104431

PATIENT
  Sex: Female
  Weight: 74.8 kg

DRUGS (4)
  1. NARDIL [Suspect]
     Indication: ELECTROLYTE IMBALANCE
  2. XANAX [Suspect]
     Indication: STRESS
  3. DRUG, UNSPECIFIED [Suspect]
     Indication: HERNIA
  4. ANTIHYPERTENSIVES [Suspect]
     Indication: HYPERTENSION

REACTIONS (7)
  - ABNORMAL BEHAVIOUR [None]
  - ANXIETY [None]
  - DEPRESSION [None]
  - HERNIA [None]
  - HYPERTENSION [None]
  - STRESS [None]
  - WEIGHT DECREASED [None]
